FAERS Safety Report 7524460-2 (Version None)
Quarter: 2011Q2

REPORT INFORMATION
  Report Type: 
  Country: None (occurrence: None)
  Receive Date: 20110606
  Receipt Date: 20110125
  Transmission Date: 20111010
  Serious: Yes (Other)
  Sender: FDA-Public Use
  Company Number: US-BAYER-201027125NA

PATIENT
  Age: 38 Year
  Sex: Female
  Weight: 110.66 kg

DRUGS (38)
  1. MULTI-VITAMINS [Concomitant]
     Dosage: UNK UNK, BID
  2. ERY-TAB [Concomitant]
     Dosage: 333 MG, UNK
  3. DICYCLOMINE [Concomitant]
     Dosage: 20 MG, UNK
  4. PAXIL [Concomitant]
     Indication: DEPRESSION
     Dosage: DAILY
     Dates: start: 20020101
  5. ALLEGRA [Concomitant]
     Indication: MULTIPLE ALLERGIES
     Dosage: 180 MG, QD
  6. JANUVIA [Concomitant]
     Indication: DIABETES MELLITUS
     Dosage: 100 MG, QD
  7. PATANOL [Concomitant]
  8. CEPHALEXIN [Concomitant]
     Dosage: 500 MG, UNK
  9. AMITRIPTYLINE HCL [Concomitant]
  10. YASMIN [Suspect]
     Indication: POLYCYSTIC OVARIES
     Dosage: UNK
     Route: 048
     Dates: start: 20021101, end: 20080601
  11. DROSPIRENONE AND ETHINYL ESTRADIOL [Suspect]
     Indication: POLYCYSTIC OVARIES
     Dosage: UNK
     Dates: start: 20080701, end: 20091101
  12. SPIRONOLACTONE [Concomitant]
     Indication: DIURETIC THERAPY
     Dosage: 25 MG, QD
     Dates: start: 20000101
  13. ATENOLOL [Concomitant]
     Dosage: 50 MG, UNK
  14. CIPROFLOXACIN [Concomitant]
  15. RESPIRATORY SYSTEM [Concomitant]
     Indication: MULTIPLE ALLERGIES
     Dosage: AS DIRECTED
     Dates: start: 20020101
  16. ELOCON [Concomitant]
     Indication: MULTIPLE ALLERGIES
     Dosage: UNK UNK, BID
  17. METFORMIN HCL [Concomitant]
     Indication: DIABETES MELLITUS
     Dosage: 850 MG, TID
  18. DIOVAN HCT [Concomitant]
     Indication: BLOOD PRESSURE ABNORMAL
     Dosage: 25 MG, QD
  19. PRILOSEC [Concomitant]
     Dosage: 40 MG, UNK
  20. IBUPROFEN [Concomitant]
  21. LISINOPRIL [Concomitant]
     Indication: HYPERTENSION
     Dosage: 5 MG, UNK
     Dates: start: 20020101
  22. RESPIRATORY SYSTEM [Concomitant]
     Dosage: 5 MG, UNK
  23. YAZ [Suspect]
     Indication: POLYCYSTIC OVARIES
     Dosage: UNK
     Route: 048
     Dates: start: 20021101
  24. BENTYL [Concomitant]
     Indication: GASTROINTESTINAL PAIN
     Dosage: 20 MG, QD
     Route: 048
  25. CARAFATE [Concomitant]
     Indication: ULCER
     Dosage: UNK UNK, TID
     Route: 048
  26. NEBIVOLOL HCL [Concomitant]
     Indication: UNEVALUABLE EVENT
     Dosage: 5 MG, QD
  27. GLIPIZIDE [Concomitant]
     Dosage: UNK UNK, QD
  28. ASPIRIN [Concomitant]
     Dosage: 81 MG, QD
  29. CHONDROITIN W/GLUCOSAMINE [Concomitant]
     Indication: ARTHRITIS
     Dosage: UNK UNK, QD
  30. RHINOCORT [Concomitant]
     Indication: MULTIPLE ALLERGIES
     Dosage: UNK UNK, QD
     Dates: start: 20020101
  31. OLOPATADINE HYDROCHLORIDE [Concomitant]
     Indication: MULTIPLE ALLERGIES
     Dosage: UNK UNK, QD
  32. ACIPHEX [Concomitant]
     Indication: MULTIPLE ALLERGIES
     Dosage: 20 MG, QD
     Route: 048
  33. FEOSOL [Concomitant]
     Indication: BLOOD IRON DECREASED
     Dosage: UNK UNK, QD
  34. LOTRISONE [Concomitant]
     Dosage: UNK UNK, PRN
  35. PAXIL CR [Concomitant]
     Dosage: 12.5 MG, UNK
  36. NEBIVOLOL HCL [Concomitant]
  37. ACETAMINOPHEN AND HYDROCODONE BITARTRATE [Concomitant]
  38. PAROXETINE [Concomitant]
     Dosage: 20 MG, UNK

REACTIONS (13)
  - CHOLECYSTITIS CHRONIC [None]
  - ABDOMINAL PAIN [None]
  - NAUSEA [None]
  - OESOPHAGEAL SPASM [None]
  - ABDOMINAL PAIN UPPER [None]
  - GASTRITIS EROSIVE [None]
  - CHOLESTEROSIS [None]
  - HEPATOBILIARY SCAN ABNORMAL [None]
  - VOMITING [None]
  - GASTROOESOPHAGEAL REFLUX DISEASE [None]
  - BILIARY COLIC [None]
  - FOOD INTOLERANCE [None]
  - BARRETT'S OESOPHAGUS [None]
